FAERS Safety Report 12417362 (Version 1)
Quarter: 2016Q2

REPORT INFORMATION
  Report Type: Spontaneous
  Country: GB (occurrence: GB)
  Receive Date: 20160530
  Receipt Date: 20160530
  Transmission Date: 20160815
  Serious: Yes (Other)
  Sender: FDA-Public Use
  Company Number: GB-JNJFOC-20151127159

PATIENT
  Sex: Male

DRUGS (1)
  1. SIMPONI [Suspect]
     Active Substance: GOLIMUMAB
     Indication: PRODUCT USED FOR UNKNOWN INDICATION
     Route: 058

REACTIONS (9)
  - Haemorrhage [Unknown]
  - Skin ulcer [Recovered/Resolved]
  - Sciatica [Unknown]
  - Inflammation [Unknown]
  - Tooth disorder [Unknown]
  - Ulcer [Recovered/Resolved]
  - Gastrointestinal infection [Unknown]
  - Arthropathy [Unknown]
  - Adverse event [Unknown]

NARRATIVE: CASE EVENT DATE: 2015
